FAERS Safety Report 5967490-4 (Version None)
Quarter: 2008Q4

REPORT INFORMATION
  Report Type: 
  Country: None (occurrence: None)
  Receive Date: 20081125
  Receipt Date: 20081114
  Transmission Date: 20090506
  Serious: Yes (Other)
  Sender: FDA-Public Use
  Company Number: US-PFIZER INC-2003123615

PATIENT
  Sex: Female
  Weight: 83.9 kg

DRUGS (20)
  1. LIPITOR [Suspect]
     Indication: ILL-DEFINED DISORDER
     Dosage: TEXT:UNKNOWN-FREQ:UNKNOWN
     Route: 065
     Dates: end: 20030821
  2. NORVASC [Suspect]
     Indication: ILL-DEFINED DISORDER
     Dosage: TEXT:UNKNOWN-FREQ:UNKNOWN
     Route: 065
  3. ACCUPRIL [Suspect]
     Indication: ILL-DEFINED DISORDER
     Dosage: TEXT:UNKNOWN-FREQ:UNKNOWN
     Route: 065
  4. HYDROCHLOROTHIAZIDE [Suspect]
     Indication: ILL-DEFINED DISORDER
     Dosage: TEXT:UNKNOWN-FREQ:UNKNOWN
     Route: 065
  5. POTASSIUM CHLORIDE [Suspect]
     Indication: ILL-DEFINED DISORDER
     Dosage: TEXT:UNKNOWN-FREQ:UNKNOWN
     Route: 065
  6. LEVOTHROID [Suspect]
     Indication: ILL-DEFINED DISORDER
     Dosage: TEXT:UNKNOWN-FREQ:UNKNOWN
     Route: 065
  7. ATENOLOL [Concomitant]
     Route: 065
  8. LITHIUM CARBONATE [Concomitant]
     Route: 065
  9. LITHOBID [Concomitant]
     Route: 065
  10. LITHIUM CARBONATE [Concomitant]
     Route: 065
  11. SYNTHROID [Concomitant]
     Route: 065
  12. LASIX [Concomitant]
     Route: 065
  13. RANITIDINE [Concomitant]
     Route: 065
  14. ALL OTHER THERAPEUTIC PRODUCTS [Concomitant]
     Route: 065
  15. TRIAMTERENE AND HYDROCHLOROTHIAZIDE [Concomitant]
     Route: 065
  16. GARLIC [Concomitant]
     Route: 065
  17. IBUPROFEN TABLETS [Concomitant]
     Route: 065
  18. EXCEDRIN (MIGRAINE) [Concomitant]
     Route: 065
  19. ASCORBIC ACID [Concomitant]
     Route: 065
  20. IMIPRAMINE [Concomitant]
     Route: 065
     Dates: end: 20010601

REACTIONS (93)
  - ABNORMAL BEHAVIOUR [None]
  - ACTIVITIES OF DAILY LIVING IMPAIRED [None]
  - ADVERSE DRUG REACTION [None]
  - ALOPECIA [None]
  - ANGIOPATHY [None]
  - ARRHYTHMIA [None]
  - ARTHRALGIA [None]
  - ASTHENIA [None]
  - ATRIAL FIBRILLATION [None]
  - ATRIAL FLUTTER [None]
  - ATRIOVENTRICULAR BLOCK [None]
  - BLOOD BILIRUBIN INCREASED [None]
  - BLOOD CALCIUM INCREASED [None]
  - BLOOD CHOLESTEROL [None]
  - BLOOD GLUCOSE INCREASED [None]
  - BLOOD POTASSIUM DECREASED [None]
  - BLOOD THYROID STIMULATING HORMONE INCREASED [None]
  - BRADYCARDIA [None]
  - BUNDLE BRANCH BLOCK RIGHT [None]
  - CARDIAC DISORDER [None]
  - CARDIAC FAILURE CONGESTIVE [None]
  - CHEST DISCOMFORT [None]
  - CHEST PAIN [None]
  - CONCUSSION [None]
  - CONSTIPATION [None]
  - CONTUSION [None]
  - COUGH [None]
  - DELIRIUM [None]
  - DIARRHOEA [None]
  - DIZZINESS [None]
  - DRY MOUTH [None]
  - DYSPEPSIA [None]
  - DYSPNOEA [None]
  - ECCHYMOSIS [None]
  - ELECTROCARDIOGRAM ABNORMAL [None]
  - ERYTHEMA [None]
  - EXCORIATION [None]
  - FALL [None]
  - FATIGUE [None]
  - FEELING ABNORMAL [None]
  - FLUSHING [None]
  - FOOD CRAVING [None]
  - GAIT DISTURBANCE [None]
  - GLUCOSE TOLERANCE IMPAIRED [None]
  - HAEMATOMA [None]
  - HEADACHE [None]
  - HEART RATE DECREASED [None]
  - HEART RATE INCREASED [None]
  - HEAT EXHAUSTION [None]
  - HYPERTENSION [None]
  - HYPOACUSIS [None]
  - HYPOAESTHESIA [None]
  - INFLAMMATION [None]
  - INJURY [None]
  - INSOMNIA [None]
  - JOINT SPRAIN [None]
  - LABORATORY TEST ABNORMAL [None]
  - LEFT ATRIAL DILATATION [None]
  - LIMB DISCOMFORT [None]
  - LIMB INJURY [None]
  - MALAISE [None]
  - MANIA [None]
  - MULTIPLE GATED ACQUISITION SCAN ABNORMAL [None]
  - MUSCLE DISORDER [None]
  - MUSCLE INJURY [None]
  - MUSCLE SPASMS [None]
  - MUSCULOSKELETAL PAIN [None]
  - MUSCULOSKELETAL STIFFNESS [None]
  - MYOCARDIAL INFARCTION [None]
  - MYOCARDIAL ISCHAEMIA [None]
  - NAUSEA [None]
  - NERVE INJURY [None]
  - OEDEMA PERIPHERAL [None]
  - ORTHOPNOEA [None]
  - ORTHOSTATIC HYPOTENSION [None]
  - OSTEOPENIA [None]
  - OSTEOPOROSIS [None]
  - PAIN [None]
  - PAIN IN EXTREMITY [None]
  - PALPITATIONS [None]
  - PANIC ATTACK [None]
  - PANIC DISORDER [None]
  - PARAESTHESIA [None]
  - PERIORBITAL HAEMATOMA [None]
  - PLEURAL FIBROSIS [None]
  - POOR QUALITY SLEEP [None]
  - POSTNASAL DRIP [None]
  - SKIN LESION [None]
  - SOMNOLENCE [None]
  - SYNCOPE [None]
  - THERAPEUTIC AGENT TOXICITY [None]
  - TINNITUS [None]
  - URINARY TRACT INFECTION [None]
